FAERS Safety Report 11940589 (Version 1)
Quarter: 2016Q1

REPORT INFORMATION
  Report Type: Spontaneous
  Country: US (occurrence: US)
  Receive Date: 20160122
  Receipt Date: 20160122
  Transmission Date: 20160526
  Serious: Yes (Hospitalization)
  Sender: FDA-Public Use
  Company Number: US-PRINSTON PHARMACEUTICAL INC.-2016RIS00008

PATIENT
  Age: 31 Year
  Sex: Female

DRUGS (1)
  1. LOSARTAN AND AMLODIPINE [Suspect]
     Active Substance: AMLODIPINE\LOSARTAN

REACTIONS (3)
  - Headache [None]
  - Shock [Recovered/Resolved]
  - Intentional overdose [Recovered/Resolved]
